FAERS Safety Report 19787947 (Version 1)
Quarter: 2021Q3

REPORT INFORMATION
  Report Type: Spontaneous
  Country: CA (occurrence: CA)
  Receive Date: 20210903
  Receipt Date: 20210903
  Transmission Date: 20211014
  Serious: Yes (Other)
  Sender: FDA-Public Use
  Company Number: CA-TEVA-2021-CA-1948179

PATIENT
  Age: 2 Year
  Sex: Female

DRUGS (6)
  1. LINEZOLID. [Suspect]
     Active Substance: LINEZOLID
     Indication: OTITIS MEDIA BACTERIAL
     Route: 065
  2. AMIKACIN. [Suspect]
     Active Substance: AMIKACIN
     Indication: OTITIS MEDIA BACTERIAL
     Route: 065
  3. BORIC ACID [Concomitant]
     Active Substance: BORIC ACID
     Indication: MYCOBACTERIUM ABSCESSUS INFECTION
     Route: 065
  4. CEFOXITIN [Suspect]
     Active Substance: CEFOXITIN SODIUM
     Indication: OTITIS MEDIA BACTERIAL
     Route: 065
  5. AZITHROMYCIN ANHYDROUS. [Suspect]
     Active Substance: AZITHROMYCIN ANHYDROUS
     Indication: OTITIS MEDIA BACTERIAL
     Route: 065
  6. CLARITHROMYCIN. [Suspect]
     Active Substance: CLARITHROMYCIN
     Indication: OTITIS MEDIA BACTERIAL
     Route: 065

REACTIONS (2)
  - Candida infection [Unknown]
  - Otitis media fungal [Unknown]
